FAERS Safety Report 5764182-1 (Version None)
Quarter: 2008Q2

REPORT INFORMATION
  Report Type: 
  Country: None (occurrence: None)
  Receive Date: 20080610
  Receipt Date: 20080606
  Transmission Date: 20081010
  Serious: Yes (Death)
  Sender: FDA-Public Use
  Company Number: US-GILEAD-2008-0015963

PATIENT
  Sex: Female

DRUGS (4)
  1. LETAIRIS [Suspect]
     Indication: PULMONARY HYPERTENSION
     Route: 048
     Dates: start: 20080226, end: 20080321
  2. BOSENTAN [Concomitant]
  3. REVATIO [Concomitant]
  4. VENTAVIS [Concomitant]

REACTIONS (1)
  - DEATH [None]
